FAERS Safety Report 19786432 (Version 2)
Quarter: 2021Q4

REPORT INFORMATION
  Report Type: Spontaneous
  Country: FR (occurrence: FR)
  Receive Date: 20210903
  Receipt Date: 20211001
  Transmission Date: 20220304
  Serious: Yes (Other)
  Sender: FDA-Public Use
  Company Number: FR-MENARINI-FR-MEN-077705

PATIENT
  Age: 76 Year
  Sex: Female

DRUGS (3)
  1. DILTIAZEM [Interacting]
     Active Substance: DILTIAZEM
     Indication: Product used for unknown indication
     Dosage: UNK
     Route: 048
     Dates: start: 20201216
  2. BILASTINE [Interacting]
     Active Substance: BILASTINE
     Indication: Product used for unknown indication
     Dosage: 40 MILLIGRAM, QD
     Route: 048
     Dates: start: 20201226, end: 20201226
  3. BILASTINE [Interacting]
     Active Substance: BILASTINE
     Indication: Dermatitis allergic
     Dosage: 20 MILLIGRAM, QD
     Route: 048
     Dates: start: 20201227

REACTIONS (4)
  - Angioedema [Recovered/Resolved]
  - Drug interaction [Recovered/Resolved]
  - Product use in unapproved indication [Recovered/Resolved]
  - Prescribed overdose [Recovered/Resolved]

NARRATIVE: CASE EVENT DATE: 20201226
